FAERS Safety Report 9364269 (Version 1)
Quarter: 2013Q2

REPORT INFORMATION
  Report Type: Spontaneous
  Country: US (occurrence: None)
  Receive Date: 20130619
  Receipt Date: 20130619
  Transmission Date: 20140414
  Serious: Yes (Other)
  Sender: FDA-Public Use
  Company Number: JPI-P-032911

PATIENT
  Age: 36 Year
  Sex: Female

DRUGS (5)
  1. XYREM [Suspect]
     Indication: NARCOLEPSY
     Dosage: 4.5 GM (2.25 GM, 2 IN 1 D), ORAL
     Route: 048
     Dates: start: 20110310
  2. LOSARTAN/ HYDROCHLOROTHIAZIDE [Suspect]
  3. CLONAZEPAM [Suspect]
  4. DULOXETINE [Suspect]
  5. MODAFINIL [Suspect]

REACTIONS (1)
  - Sleep apnoea syndrome [None]
